FAERS Safety Report 24618185 (Version 1)
Quarter: 2024Q4

REPORT INFORMATION
  Report Type: Spontaneous
  Country: US (occurrence: US)
  Receive Date: 20241114
  Receipt Date: 20241114
  Transmission Date: 20250115
  Serious: No
  Sender: CIPLA
  Company Number: US-CIPLA LTD.-2024US11014

PATIENT

DRUGS (3)
  1. AMLODIPINE [Suspect]
     Active Substance: AMLODIPINE BESYLATE
     Indication: Blood pressure abnormal
     Dosage: 5 MILLIGRAM, QD (STRENGTH: 5 MG)
     Route: 048
     Dates: start: 202407
  2. AMLODIPINE [Suspect]
     Active Substance: AMLODIPINE BESYLATE
     Dosage: 7.5 MILLIGRAM (STRENGTH: 5 MG + 2.5 MG)
     Route: 048
     Dates: start: 20240920, end: 20240920
  3. AMLODIPINE [Suspect]
     Active Substance: AMLODIPINE BESYLATE
     Dosage: 7.5 MILLIGRAM (STRENGTH: 5 MG + 2.5 MG)
     Route: 048
     Dates: start: 20240923, end: 20240923

REACTIONS (3)
  - Hiccups [Not Recovered/Not Resolved]
  - Intentional product use issue [Unknown]
  - Therapy cessation [Unknown]

NARRATIVE: CASE EVENT DATE: 20240920
